FAERS Safety Report 12930709 (Version 2)
Quarter: 2019Q2

REPORT INFORMATION
  Report Type: Spontaneous
  Country: US (occurrence: US)
  Receive Date: 20161110
  Receipt Date: 20190401
  Transmission Date: 20190711
  Serious: No
  Sender: FDA-Public Use
  Company Number: US-VANDA PHARMACEUTICALS, INC-2016TASUS001374

PATIENT
  Age: 67 Year
  Sex: Female

DRUGS (1)
  1. HETLIOZ [Suspect]
     Active Substance: TASIMELTEON
     Indication: BLINDNESS
     Dosage: 20 MG, QHS
     Route: 048
     Dates: start: 20160823

REACTIONS (3)
  - Adverse drug reaction [Unknown]
  - Incorrect product administration duration [Unknown]
  - Drug ineffective [Unknown]
